FAERS Safety Report 4598330-6 (Version None)
Quarter: 2005Q1

REPORT INFORMATION
  Report Type: 
  Country: None (occurrence: None)
  Receive Date: 20050304
  Receipt Date: 20050209
  Transmission Date: 20050727
  Serious: Yes (Other)
  Sender: FDA-Public Use
  Company Number: GXKR2005JP00600

PATIENT
  Age: 37 Year
  Sex: Female

DRUGS (6)
  1. RIFAMPICIN [Suspect]
     Indication: LEPROSY
     Route: 048
  2. CLOFAZIMINE [Suspect]
     Indication: LEPROSY
     Route: 048
  3. DIAPHENYLSULFON [Suspect]
     Indication: LEPROSY
     Route: 048
  4. LEVOFLOXACIN [Concomitant]
     Indication: LEPROSY
     Route: 048
  5. CLARITHROMYCIN [Concomitant]
     Indication: LEPROSY
     Dosage: UNK, UNK
     Route: 048
  6. PREDNISOLONE [Concomitant]
     Indication: NEURITIS
     Dosage: 30 MG, QD
     Route: 048

REACTIONS (3)
  - HAEMOLYTIC ANAEMIA [None]
  - NEURITIS [None]
  - RENAL IMPAIRMENT [None]
